FAERS Safety Report 19533176 (Version 2)
Quarter: 2025Q3

REPORT INFORMATION
  Report Type: Spontaneous
  Country: EU (occurrence: EU)
  Receive Date: 20210713
  Receipt Date: 20250813
  Transmission Date: 20251020
  Serious: Yes (Other)
  Sender: MYLAN
  Company Number: EU-PFIZER INC-2021017196

PATIENT
  Age: 71 Year
  Sex: Female

DRUGS (64)
  1. FORMOTEROL [Suspect]
     Active Substance: FORMOTEROL
     Indication: Asthma
  2. FORMOTEROL [Suspect]
     Active Substance: FORMOTEROL
     Route: 065
  3. FORMOTEROL [Suspect]
     Active Substance: FORMOTEROL
     Route: 065
  4. FORMOTEROL [Suspect]
     Active Substance: FORMOTEROL
  5. AZITHROMYCIN [Suspect]
     Active Substance: AZITHROMYCIN
     Indication: Mycobacterial infection
  6. AZITHROMYCIN [Suspect]
     Active Substance: AZITHROMYCIN
     Route: 065
  7. AZITHROMYCIN [Suspect]
     Active Substance: AZITHROMYCIN
     Route: 065
  8. AZITHROMYCIN [Suspect]
     Active Substance: AZITHROMYCIN
  9. MONTELUKAST [Suspect]
     Active Substance: MONTELUKAST
     Indication: Asthma
  10. MONTELUKAST [Suspect]
     Active Substance: MONTELUKAST
     Route: 065
  11. MONTELUKAST [Suspect]
     Active Substance: MONTELUKAST
     Route: 065
  12. MONTELUKAST [Suspect]
     Active Substance: MONTELUKAST
  13. TIOTROPIUM [Suspect]
     Active Substance: TIOTROPIUM
     Indication: Asthma
  14. TIOTROPIUM [Suspect]
     Active Substance: TIOTROPIUM
     Route: 065
  15. TIOTROPIUM [Suspect]
     Active Substance: TIOTROPIUM
     Route: 065
  16. TIOTROPIUM [Suspect]
     Active Substance: TIOTROPIUM
  17. FLUTICASONE PROPIONATE\SALMETEROL XINAFOATE [Suspect]
     Active Substance: FLUTICASONE PROPIONATE\SALMETEROL XINAFOATE
     Indication: Asthma
     Dosage: 1000 MICROGRAM, QD
  18. FLUTICASONE PROPIONATE\SALMETEROL XINAFOATE [Suspect]
     Active Substance: FLUTICASONE PROPIONATE\SALMETEROL XINAFOATE
     Dosage: 1000 MICROGRAM, QD
     Route: 065
  19. FLUTICASONE PROPIONATE\SALMETEROL XINAFOATE [Suspect]
     Active Substance: FLUTICASONE PROPIONATE\SALMETEROL XINAFOATE
     Dosage: 1000 MICROGRAM, QD
     Route: 065
  20. FLUTICASONE PROPIONATE\SALMETEROL XINAFOATE [Suspect]
     Active Substance: FLUTICASONE PROPIONATE\SALMETEROL XINAFOATE
     Dosage: 1000 MICROGRAM, QD
  21. ETHAMBUTOL [Suspect]
     Active Substance: ETHAMBUTOL HYDROCHLORIDE
     Indication: Mycobacterial infection
  22. ETHAMBUTOL [Suspect]
     Active Substance: ETHAMBUTOL HYDROCHLORIDE
     Route: 065
  23. ETHAMBUTOL [Suspect]
     Active Substance: ETHAMBUTOL HYDROCHLORIDE
     Route: 065
  24. ETHAMBUTOL [Suspect]
     Active Substance: ETHAMBUTOL HYDROCHLORIDE
  25. RIFABUTIN [Suspect]
     Active Substance: RIFABUTIN
     Indication: Mycobacterial infection
  26. RIFABUTIN [Suspect]
     Active Substance: RIFABUTIN
     Route: 065
  27. RIFABUTIN [Suspect]
     Active Substance: RIFABUTIN
     Route: 065
  28. RIFABUTIN [Suspect]
     Active Substance: RIFABUTIN
  29. MOXIFLOXACIN [Suspect]
     Active Substance: MOXIFLOXACIN
     Indication: Mycobacterial infection
  30. MOXIFLOXACIN [Suspect]
     Active Substance: MOXIFLOXACIN
     Route: 065
  31. MOXIFLOXACIN [Suspect]
     Active Substance: MOXIFLOXACIN
     Route: 065
  32. MOXIFLOXACIN [Suspect]
     Active Substance: MOXIFLOXACIN
  33. BUDESONIDE [Suspect]
     Active Substance: BUDESONIDE
     Indication: Asthma
  34. BUDESONIDE [Suspect]
     Active Substance: BUDESONIDE
     Route: 065
  35. BUDESONIDE [Suspect]
     Active Substance: BUDESONIDE
     Route: 065
  36. BUDESONIDE [Suspect]
     Active Substance: BUDESONIDE
  37. MEDROL [Suspect]
     Active Substance: METHYLPREDNISOLONE
     Indication: Asthma
  38. MEDROL [Suspect]
     Active Substance: METHYLPREDNISOLONE
     Route: 065
  39. MEDROL [Suspect]
     Active Substance: METHYLPREDNISOLONE
     Route: 065
  40. MEDROL [Suspect]
     Active Substance: METHYLPREDNISOLONE
  41. MEPOLIZUMAB [Suspect]
     Active Substance: MEPOLIZUMAB
     Indication: Asthma
  42. MEPOLIZUMAB [Suspect]
     Active Substance: MEPOLIZUMAB
     Route: 065
  43. MEPOLIZUMAB [Suspect]
     Active Substance: MEPOLIZUMAB
     Route: 065
  44. MEPOLIZUMAB [Suspect]
     Active Substance: MEPOLIZUMAB
  45. ALBUTEROL [Suspect]
     Active Substance: ALBUTEROL
     Indication: Asthma
  46. ALBUTEROL [Suspect]
     Active Substance: ALBUTEROL
     Route: 065
  47. ALBUTEROL [Suspect]
     Active Substance: ALBUTEROL
     Route: 065
  48. ALBUTEROL [Suspect]
     Active Substance: ALBUTEROL
  49. TRIAMCINOLONE [Suspect]
     Active Substance: TRIAMCINOLONE
     Indication: Asthma
  50. TRIAMCINOLONE [Suspect]
     Active Substance: TRIAMCINOLONE
     Route: 065
  51. TRIAMCINOLONE [Suspect]
     Active Substance: TRIAMCINOLONE
     Route: 065
  52. TRIAMCINOLONE [Suspect]
     Active Substance: TRIAMCINOLONE
  53. BECLOMETHASONE DIPROPIONATE [Suspect]
     Active Substance: BECLOMETHASONE DIPROPIONATE
     Indication: Asthma
  54. BECLOMETHASONE DIPROPIONATE [Suspect]
     Active Substance: BECLOMETHASONE DIPROPIONATE
     Route: 065
  55. BECLOMETHASONE DIPROPIONATE [Suspect]
     Active Substance: BECLOMETHASONE DIPROPIONATE
     Route: 065
  56. BECLOMETHASONE DIPROPIONATE [Suspect]
     Active Substance: BECLOMETHASONE DIPROPIONATE
  57. THEOPHYLLINE [Suspect]
     Active Substance: THEOPHYLLINE
     Indication: Asthma
  58. THEOPHYLLINE [Suspect]
     Active Substance: THEOPHYLLINE
     Route: 065
  59. THEOPHYLLINE [Suspect]
     Active Substance: THEOPHYLLINE
     Route: 065
  60. THEOPHYLLINE [Suspect]
     Active Substance: THEOPHYLLINE
  61. SALMETEROL [Suspect]
     Active Substance: SALMETEROL
     Indication: Asthma
  62. SALMETEROL [Suspect]
     Active Substance: SALMETEROL
     Route: 065
  63. SALMETEROL [Suspect]
     Active Substance: SALMETEROL
     Route: 065
  64. SALMETEROL [Suspect]
     Active Substance: SALMETEROL

REACTIONS (2)
  - Therapeutic product effect incomplete [Unknown]
  - Drug ineffective [Unknown]
